FAERS Safety Report 15550512 (Version 11)
Quarter: 2019Q3

REPORT INFORMATION
  Report Type: Spontaneous
  Country: CA (occurrence: CA)
  Receive Date: 20181025
  Receipt Date: 20190905
  Transmission Date: 20191004
  Serious: Yes (Other)
  Sender: FDA-Public Use
  Company Number: CA-CELLTRION INC.-2018CA022680

PATIENT

DRUGS (16)
  1. INFLECTRA [Suspect]
     Active Substance: INFLIXIMAB-DYYB
     Indication: COLITIS ULCERATIVE
     Dosage: 660 MG, EVERY 0, 2, 6 WEEKS, THEN EVERY 8 WEEKS
     Route: 042
     Dates: start: 20180713, end: 20180713
  2. INFLECTRA [Suspect]
     Active Substance: INFLIXIMAB-DYYB
     Dosage: 660 MG, EVERY 0, 2 WEEKS, THEN EVERY 6 WEEKS
     Route: 042
     Dates: start: 20180827, end: 20180827
  3. FOLIC ACID. [Concomitant]
     Active Substance: FOLIC ACID
     Dosage: 5 MG, DAILY
  4. INFLECTRA [Suspect]
     Active Substance: INFLIXIMAB-DYYB
     Dosage: 660 MG, EVERY 0, 2, 6 WEEKS, THEN EVERY 8 WEEKS
     Route: 042
     Dates: start: 20180716, end: 20180716
  5. INFLECTRA [Suspect]
     Active Substance: INFLIXIMAB-DYYB
     Dosage: 660 MG, EVERY 0 ,2 ,6 WEEKS, THEN EVERY 8 WEEKS
     Route: 042
     Dates: start: 20180716, end: 20180716
  6. INFLECTRA [Suspect]
     Active Substance: INFLIXIMAB-DYYB
     Dosage: 660 MG, EVERY 0, 2 WEEKS, THEN EVERY 6 WEEKS
     Route: 042
     Dates: start: 20180731, end: 20180731
  7. INFLECTRA [Suspect]
     Active Substance: INFLIXIMAB-DYYB
     Dosage: 660 MG, EVERY 0, 2 WEEKS, THEN EVERY 6 WEEKS
     Route: 042
     Dates: start: 20181012, end: 20181012
  8. INFLECTRA [Suspect]
     Active Substance: INFLIXIMAB-DYYB
     Dosage: 660 MG, EVERY 0, 2 WEEKS, THEN EVERY 6 WEEKS
     Route: 042
     Dates: start: 20190628
  9. INFLECTRA [Suspect]
     Active Substance: INFLIXIMAB-DYYB
     Dosage: 660 MG, EVERY 0, 2 WEEKS, THEN EVERY 6 WEEKS
     Route: 042
     Dates: start: 20190405
  10. INFLECTRA [Suspect]
     Active Substance: INFLIXIMAB-DYYB
     Dosage: 660 MG, EVERY 0, 2 WEEKS, THEN EVERY 6 WEEKS
     Route: 042
     Dates: start: 20181127, end: 20181127
  11. INFLECTRA [Suspect]
     Active Substance: INFLIXIMAB-DYYB
     Dosage: 660 MG, EVERY 0, 2 WEEKS, THEN EVERY 6 WEEKS
     Route: 042
     Dates: start: 20190517
  12. METHOTREXATE. [Concomitant]
     Active Substance: METHOTREXATE
     Dosage: 12.5 MG, WEEKLY
     Route: 048
     Dates: start: 201808
  13. INFLECTRA [Suspect]
     Active Substance: INFLIXIMAB-DYYB
     Dosage: 660 MG, CYCLIC (0,2,6 WEEKS, THEN EVERY 6 WEEKS)
     Route: 042
     Dates: start: 20190813
  14. INFLECTRA [Suspect]
     Active Substance: INFLIXIMAB-DYYB
     Dosage: 660 MG, EVERY 0, 2 WEEKS, THEN EVERY 6 WEEKS
     Route: 042
     Dates: start: 20190111
  15. INFLECTRA [Suspect]
     Active Substance: INFLIXIMAB-DYYB
     Dosage: 660 MG, EVERY 0, 2 WEEKS, THEN EVERY 6 WEEKS
     Route: 042
     Dates: start: 20190222
  16. ASACOL [Concomitant]
     Active Substance: MESALAMINE
     Dosage: 2400 MG, DAILY
     Route: 048
     Dates: start: 201807

REACTIONS (7)
  - Product use issue [Unknown]
  - Condition aggravated [Recovering/Resolving]
  - Mean cell haemoglobin increased [Unknown]
  - Weight decreased [Unknown]
  - Red blood cell count decreased [Unknown]
  - Weight increased [Unknown]
  - Off label use [Unknown]

NARRATIVE: CASE EVENT DATE: 20180920
